FAERS Safety Report 8617835-1 (Version None)
Quarter: 2012Q3

REPORT INFORMATION
  Report Type: 
  Country: None (occurrence: None)
  Receive Date: 20120824
  Receipt Date: 20120222
  Transmission Date: 20120928
  Serious: No
  Sender: FDA-Public Use
  Company Number: US-ASTRAZENECA-2012SE12151

PATIENT
  Age: 90 Year
  Sex: Male

DRUGS (2)
  1. SYMBICORT [Suspect]
     Indication: DYSPNOEA
     Dosage: 2 PUFFS BID
     Route: 055
  2. SYMBICORT [Suspect]
     Indication: TOTAL LUNG CAPACITY DECREASED
     Dosage: 2 PUFFS BID
     Route: 055

REACTIONS (3)
  - COUGH [None]
  - OFF LABEL USE [None]
  - DYSPNOEA [None]
